FAERS Safety Report 5369630-7 (Version None)
Quarter: 2007Q2

REPORT INFORMATION
  Report Type: 
  Country: None (occurrence: None)
  Receive Date: 20070625
  Receipt Date: 20070613
  Transmission Date: 20071010
  Serious: Yes (Other)
  Sender: FDA-Public Use
  Company Number: US-PFIZER INC-2007005794

PATIENT
  Sex: Female
  Weight: 65.8 kg

DRUGS (5)
  1. VARENICLINE [Suspect]
     Indication: SMOKING CESSATION THERAPY
  2. COMPAZINE [Suspect]
     Indication: NAUSEA
  3. CLONAZEPAM [Concomitant]
  4. METOCLOPRAMIDE HYDROCHLORIDE [Concomitant]
     Indication: GASTRIC DISORDER
  5. SYNTHROID [Concomitant]
     Indication: HYPOTHYROIDISM

REACTIONS (7)
  - ASTHENIA [None]
  - BLOOD GLUCOSE INCREASED [None]
  - CONSTIPATION [None]
  - DIARRHOEA [None]
  - MUSCULAR WEAKNESS [None]
  - NAUSEA [None]
  - SOMNOLENCE [None]
